FAERS Safety Report 10449959 (Version 1)
Quarter: 2014Q3

REPORT INFORMATION
  Report Type: Report from Study
  Country: CA (occurrence: CA)
  Receive Date: 20140912
  Receipt Date: 20140912
  Transmission Date: 20150326
  Serious: Yes (Other)
  Sender: FDA-Public Use
  Company Number: CA-JNJFOC-20140906006

PATIENT
  Age: 13 Year
  Sex: Female
  Weight: 33.1 kg

DRUGS (5)
  1. BENADRYL [Concomitant]
     Active Substance: DIPHENHYDRAMINE HYDROCHLORIDE
     Indication: PREMEDICATION
     Route: 042
  2. IMURAN [Concomitant]
     Active Substance: AZATHIOPRINE
     Dosage: 1 AND A HALF TABLETS
     Route: 065
  3. REMICADE [Suspect]
     Active Substance: INFLIXIMAB
     Indication: COLITIS ULCERATIVE
     Route: 042
     Dates: start: 20140905
  4. REMICADE [Suspect]
     Active Substance: INFLIXIMAB
     Indication: COLITIS ULCERATIVE
     Dosage: 3 RD LOADING DOSE
     Route: 042
     Dates: start: 20140815
  5. PREDNISONE. [Concomitant]
     Active Substance: PREDNISONE
     Dosage: 7 TABLETS
     Route: 065

REACTIONS (2)
  - Dyspnoea [Recovered/Resolved]
  - Infusion related reaction [Recovered/Resolved]

NARRATIVE: CASE EVENT DATE: 20140905
